FAERS Safety Report 8589337-2 (Version None)
Quarter: 2012Q3

REPORT INFORMATION
  Report Type: 
  Country: None (occurrence: None)
  Receive Date: 20120813
  Receipt Date: 20120807
  Transmission Date: 20120928
  Serious: Yes (Other)
  Sender: FDA-Public Use
  Company Number: JP-VERTEX PHARMACEUTICALS INC.-AE-2012-011882

PATIENT
  Age: 65 Year
  Sex: Female

DRUGS (8)
  1. RIBAVIRIN [Concomitant]
     Indication: HEPATITIS C
     Route: 048
     Dates: start: 20120507, end: 20120624
  2. PEGINTERFERON ALFA-2B [Concomitant]
     Indication: HEPATITIS C
     Route: 058
     Dates: start: 20120507
  3. ALLOPURINOL [Concomitant]
     Route: 048
     Dates: start: 20120510, end: 20120730
  4. LOXONIN [Concomitant]
     Route: 048
     Dates: start: 20120507
  5. RIBAVIRIN [Concomitant]
     Route: 048
     Dates: start: 20120625, end: 20120730
  6. OLOPATADINE HCL [Concomitant]
     Route: 048
     Dates: start: 20120509, end: 20120730
  7. TELAVIC (TELAPREVIR) [Suspect]
     Indication: HEPATITIS C
     Route: 048
     Dates: start: 20120507, end: 20120708
  8. BETAMETHASONE SODIUM PHOSPHATE [Concomitant]
     Route: 061
     Dates: start: 20120625

REACTIONS (1)
  - RASH [None]
